FAERS Safety Report 6789085-5 (Version None)
Quarter: 2010Q2

REPORT INFORMATION
  Report Type: 
  Country: None (occurrence: None)
  Receive Date: 20100623
  Receipt Date: 20080826
  Transmission Date: 20101027
  Serious: No
  Sender: FDA-Public Use
  Company Number: US-PFIZER INC-2008051027

PATIENT
  Sex: Male
  Weight: 91.63 kg

DRUGS (1)
  1. SUTENT [Suspect]
     Indication: RENAL CELL CARCINOMA
     Route: 048
     Dates: start: 20080101

REACTIONS (2)
  - DIARRHOEA [None]
  - EYE DISCHARGE [None]
